FAERS Safety Report 6355273-5 (Version None)
Quarter: 2009Q3

REPORT INFORMATION
  Report Type: 
  Country: None (occurrence: None)
  Receive Date: 20090914
  Receipt Date: 20090902
  Transmission Date: 20100115
  Serious: Yes (Other)
  Sender: FDA-Public Use
  Company Number: US-PFIZER INC-2009252581

PATIENT

DRUGS (1)
  1. NEURONTIN [Suspect]
     Dosage: UNK

REACTIONS (1)
  - HYPERTENSIVE CRISIS [None]
